FAERS Safety Report 17135321 (Version 1)
Quarter: 2019Q4

REPORT INFORMATION
  Report Type: Spontaneous
  Country: SE (occurrence: SE)
  Receive Date: 20191210
  Receipt Date: 20191210
  Transmission Date: 20200122
  Serious: Yes (Hospitalization)
  Sender: FDA-Public Use
  Company Number: SE-PFIZER INC-2019527871

PATIENT
  Age: 15 Year
  Sex: Female

DRUGS (3)
  1. SERTRALINE HCL [Suspect]
     Active Substance: SERTRALINE HYDROCHLORIDE
     Dosage: 2 G, UNK
     Route: 048
     Dates: start: 20181214, end: 20181214
  2. ALVEDON [Suspect]
     Active Substance: ACETAMINOPHEN
     Dosage: 15 G, UNK
     Route: 048
     Dates: start: 20181214, end: 20181214
  3. LERGIGAN [PROMETHAZINE HYDROCHLORIDE] [Suspect]
     Active Substance: PROMETHAZINE HYDROCHLORIDE
     Dosage: UNK
     Route: 048
     Dates: start: 20181214, end: 20181214

REACTIONS (8)
  - Incoherent [Unknown]
  - Mydriasis [Unknown]
  - Intentional self-injury [Unknown]
  - Intentional overdose [Unknown]
  - Hyperreflexia [Unknown]
  - Hallucination [Unknown]
  - Disorientation [Unknown]
  - Body temperature increased [Recovered/Resolved]

NARRATIVE: CASE EVENT DATE: 201812
